FAERS Safety Report 9423913 (Version 1)
Quarter: 2013Q3

REPORT INFORMATION
  Report Type: Spontaneous
  Country: US (occurrence: US)
  Receive Date: 20130729
  Receipt Date: 20130729
  Transmission Date: 20140515
  Serious: Yes (Hospitalization)
  Sender: FDA-Public Use
  Company Number: US-BIOGENIDEC-2013BI067345

PATIENT
  Age: 67 Year
  Sex: Female

DRUGS (8)
  1. AVONEX [Suspect]
     Indication: MULTIPLE SCLEROSIS
     Route: 030
     Dates: start: 19960801
  2. DIOVAN [Concomitant]
  3. BUSPIRONE [Concomitant]
  4. DICYCLOMINE [Concomitant]
  5. FLUOXETINE [Concomitant]
  6. GABAPENTIN [Concomitant]
  7. DIPHENOXYLATE [Concomitant]
  8. SIMVISTATIN [Concomitant]

REACTIONS (4)
  - Cerebrovascular accident [Unknown]
  - Hypertension [Not Recovered/Not Resolved]
  - Gastrointestinal disorder [Not Recovered/Not Resolved]
  - Chest discomfort [Unknown]
